FAERS Safety Report 5502309-7 (Version None)
Quarter: 2007Q4

REPORT INFORMATION
  Report Type: 
  Country: None (occurrence: None)
  Receive Date: 20071029
  Receipt Date: 20070318
  Transmission Date: 20080405
  Serious: No
  Sender: FDA-Public Use
  Company Number: FDB-2007-002

PATIENT
  Age: 55 Year
  Sex: Female
  Weight: 103 kg

DRUGS (16)
  1. CIS-MDP [Suspect]
     Indication: SCAN WITH CONTRAST
     Dosage: 25.5MCI IN 0.58ML - IV
     Route: 042
     Dates: start: 20070306
  2. LEVOTHYROXINE SODIUM [Concomitant]
  3. ENALAPRIL MALEATE [Concomitant]
  4. CLONIDINE HCL [Concomitant]
  5. ZOFRAN [Concomitant]
  6. AMBIEN [Concomitant]
  7. FLEXERIL [Concomitant]
  8. ZELNORM [Concomitant]
  9. ARTHROTEC [Concomitant]
  10. GABAPENTIN [Concomitant]
  11. PROTONIX [Concomitant]
  12. ZELNORM [Concomitant]
  13. DOCUSATE CALCIUM [Concomitant]
  14. SENNA LAXATIVE [Concomitant]
  15. OXYCODONE HCL [Concomitant]
  16. HYDROCODONE BITARTRATE + ACETAMINOPHEN [Concomitant]

REACTIONS (1)
  - VISUAL DISTURBANCE [None]
